FAERS Safety Report 6271965-0 (Version None)
Quarter: 2009Q3

REPORT INFORMATION
  Report Type: 
  Country: None (occurrence: None)
  Receive Date: 20090715
  Receipt Date: 20090527
  Transmission Date: 20100115
  Serious: Yes (Other)
  Sender: FDA-Public Use
  Company Number: USEN-7SGSC4

PATIENT
  Age: 23 Year
  Sex: Female

DRUGS (1)
  1. DURAPREP [Suspect]
     Indication: PREOPERATIVE CARE
     Dosage: 26 ML, TOPICAL
     Route: 061

REACTIONS (2)
  - BLISTER [None]
  - THERMAL BURN [None]
